FAERS Safety Report 8899060 (Version 1)
Quarter: 2012Q4

REPORT INFORMATION
  Report Type: 
  Country: US (occurrence: US)
  Receive Date: 20121108
  Receipt Date: 20121108
  Transmission Date: 20130627
  Serious: No
  Sender: FDA-Public Use
  Company Number: US-AMGEN-USASP2012027627

PATIENT
  Sex: Female

DRUGS (14)
  1. ENBREL [Suspect]
     Indication: PRODUCT USED FOR UNKNOWN INDICATION
     Dosage: 50 mg, 2 times/wk
  2. METFORMIN [Concomitant]
     Dosage: 500 mg, UNK
  3. TRIAMTERENE/HCTZ [Concomitant]
  4. TOPROL [Concomitant]
     Dosage: 25 mg, UNK
  5. LISINOPRIL [Concomitant]
     Dosage: 2.5 mg, UNK
  6. LOVASTATIN [Concomitant]
     Dosage: 10 mg, UNK
  7. ESTRADIOL [Concomitant]
     Dosage: 0.5 mg, UNK
  8. CALCIUM PLUS VITAMIN D [Concomitant]
  9. MULTIVITAMIN                       /00097801/ [Concomitant]
  10. VITAMIN C                          /00008001/ [Concomitant]
     Dosage: 500 mg, UNK
  11. VITAMIN E                          /00110501/ [Concomitant]
     Dosage: 100 IU, UNK
  12. FISH OIL [Concomitant]
  13. ASPIRIN LOW [Concomitant]
     Dosage: 81 mg, UNK
  14. VESICARE [Concomitant]
     Dosage: 5 mg, UNK

REACTIONS (1)
  - Injection site pruritus [Unknown]
